FAERS Safety Report 24679529 (Version 2)
Quarter: 2024Q4

REPORT INFORMATION
  Report Type: Spontaneous
  Country: US (occurrence: US)
  Receive Date: 20241129
  Receipt Date: 20241209
  Transmission Date: 20250115
  Serious: Yes (Other)
  Sender: RECKITT BENCKISER
  Company Number: US-PROD-AS2-212756134-20-24-USA-RB-0011298

PATIENT
  Sex: Female

DRUGS (2)
  1. MUCINEX SINUS-MAX DAY AND NIGHT MAXIMUM STRENGTH [Suspect]
     Active Substance: ACETAMINOPHEN\DEXTROMETHORPHAN HYDROBROMIDE\DOXYLAMINE SUCCINATE\GUAIFENESIN\PHENYLEPHRINE HYDROCHLO
     Indication: Sinusitis
     Dosage: 2.5 DF, UNKNOWN
     Route: 048
     Dates: start: 20241106, end: 20241107
  2. MUCINEX SINUS-MAX DAY AND NIGHT MAXIMUM STRENGTH [Suspect]
     Active Substance: ACETAMINOPHEN\DEXTROMETHORPHAN HYDROBROMIDE\DOXYLAMINE SUCCINATE\GUAIFENESIN\PHENYLEPHRINE HYDROCHLO
     Indication: Insomnia

REACTIONS (7)
  - Choking [Recovered/Resolved]
  - Foreign body in throat [Recovered/Resolved]
  - Near death experience [Recovered/Resolved]
  - Cyanosis [Recovered/Resolved]
  - Dyspnoea [Recovered/Resolved]
  - Product use complaint [Recovered/Resolved]
  - Product size issue [Unknown]

NARRATIVE: CASE EVENT DATE: 20241107
